FAERS Safety Report 20227423 (Version 1)
Quarter: 2021Q4

REPORT INFORMATION
  Report Type: Spontaneous
  Country: US (occurrence: US)
  Receive Date: 20211224
  Receipt Date: 20211224
  Transmission Date: 20220303
  Serious: No
  Sender: FDA-Public Use
  Company Number: US-BIOVITRUM-2021US12311

PATIENT
  Sex: Male

DRUGS (1)
  1. KINERET [Suspect]
     Active Substance: ANAKINRA
     Indication: Rheumatoid arthritis
     Route: 058
     Dates: start: 20210826

REACTIONS (4)
  - Blood pressure increased [Recovering/Resolving]
  - Weight increased [Recovered/Resolved]
  - Tinnitus [Unknown]
  - Product dose omission issue [Unknown]
